FAERS Safety Report 25364603 (Version 1)
Quarter: 2025Q2

REPORT INFORMATION
  Report Type: Spontaneous
  Country: US (occurrence: None)
  Receive Date: 20250527
  Receipt Date: 20250527
  Transmission Date: 20250717
  Serious: Yes (Disabling)
  Sender: FDA-CTU
  Company Number: None

PATIENT
  Age: 80 Year
  Sex: Female
  Weight: 50.4 kg

DRUGS (1)
  1. FLUOROURACIL [Suspect]
     Active Substance: FLUOROURACIL
     Indication: Squamous cell carcinoma
     Dosage: FREQUENCY : TWICE A DAY;?
     Route: 061
     Dates: start: 20250222, end: 20250322

REACTIONS (1)
  - Colitis microscopic [None]

NARRATIVE: CASE EVENT DATE: 20250222
